FAERS Safety Report 4348625-6 (Version None)
Quarter: 2004Q2

REPORT INFORMATION
  Report Type: 
  Country: None (occurrence: None)
  Receive Date: 20040423
  Receipt Date: 20040416
  Transmission Date: 20050107
  Serious: Yes (Hospitalization)
  Sender: FDA-Public Use
  Company Number: VISP-NO-0404S-0162

PATIENT
  Age: 35 Year
  Sex: Male

DRUGS (1)
  1. VISIPAQUE [Suspect]
     Indication: URINARY SYSTEM X-RAY
     Dosage: 50 ML, SINGLE DOSE, I.V.
     Route: 042
     Dates: start: 20040323, end: 20040323

REACTIONS (8)
  - C-REACTIVE PROTEIN INCREASED [None]
  - FEELING COLD [None]
  - HEADACHE [None]
  - HYPERSENSITIVITY [None]
  - NAUSEA [None]
  - PYREXIA [None]
  - VOMITING [None]
  - WHITE BLOOD CELL COUNT INCREASED [None]
